FAERS Safety Report 17160346 (Version 1)
Quarter: 2019Q4

REPORT INFORMATION
  Report Type: Spontaneous
  Country: US (occurrence: US)
  Receive Date: 20191216
  Receipt Date: 20191216
  Transmission Date: 20200122
  Serious: No
  Sender: FDA-Public Use
  Company Number: NVSC2019US070379

PATIENT
  Sex: Male

DRUGS (1)
  1. TAFINLAR [Suspect]
     Active Substance: DABRAFENIB MESYLATE
     Indication: MALIGNANT PLEURAL EFFUSION
     Dosage: 150 MG, Q12H
     Route: 048
     Dates: start: 20191111

REACTIONS (2)
  - Rash [Unknown]
  - Product use in unapproved indication [Unknown]
